FAERS Safety Report 9257914 (Version 1)
Quarter: 2013Q2

REPORT INFORMATION
  Report Type: Spontaneous
  Country: US (occurrence: None)
  Receive Date: 20130424
  Receipt Date: 20130424
  Transmission Date: 20140414
  Serious: Yes (Other)
  Sender: FDA-Public Use
  Company Number: None

PATIENT
  Age: 64 Year
  Sex: Male
  Weight: 113.5 kg

DRUGS (1)
  1. INTRON A [Suspect]
     Indication: MALIGNANT MELANOMA
     Dosage: INTRON A 48 MILLION UNITS DAILY  IV
     Route: 042
     Dates: start: 20130415, end: 20130417

REACTIONS (2)
  - Rash pruritic [None]
  - Rash erythematous [None]
